FAERS Safety Report 8444776 (Version 6)
Quarter: 2012Q4

REPORT INFORMATION
  Report Type: 
  Country: JP (occurrence: JP)
  Receive Date: 20120307
  Receipt Date: 20121112
  Transmission Date: 20130627
  Serious: Yes (Life-Threatening, Hospitalization)
  Sender: FDA-Public Use
  Company Number: JP-ASTELLAS-2012JP001656

PATIENT
  Age: 46 Year
  Sex: Female
  Weight: 61.5 kg

DRUGS (8)
  1. VESICARE [Suspect]
     Indication: HYPERTONIC BLADDER
     Dosage: 5 mg, UID/QD
     Route: 048
     Dates: start: 20111115, end: 20120228
  2. URSO [Concomitant]
     Indication: AUTOIMMUNE HEPATITIS
     Dosage: 100 mg, bid
     Route: 048
     Dates: start: 20080724, end: 20090413
  3. URSO [Concomitant]
     Dosage: 100 mg, tid
     Route: 048
     Dates: start: 20090414, end: 20120222
  4. SALIVEHT TEIJIN [Concomitant]
     Indication: SJOGREN^S SYNDROME
     Dosage: UNK
     Route: 055
     Dates: start: 20120118
  5. LACTOFERRIN [Concomitant]
     Indication: WEIGHT CONTROL
     Dosage: UNK
     Route: 048
  6. VISRRAT [Concomitant]
     Dosage: UNK
     Route: 048
  7. BRUFEN [Concomitant]
     Indication: DYSMENORRHOEA
     Dosage: UNK
     Route: 048
     Dates: start: 20120228
  8. PREDNISOLONE [Concomitant]
     Indication: AUTOIMMUNE HEPATITIS
     Dosage: 30 mg, Unknown/D
     Route: 065
     Dates: start: 20120302

REACTIONS (2)
  - Hepatic function abnormal [Recovered/Resolved]
  - Autoimmune hepatitis [Recovered/Resolved]
